FAERS Safety Report 14777725 (Version 2)
Quarter: 2018Q2

REPORT INFORMATION
  Report Type: Spontaneous
  Country: BG (occurrence: BG)
  Receive Date: 20180419
  Receipt Date: 20180529
  Transmission Date: 20180711
  Serious: Yes (Hospitalization, Other)
  Sender: FDA-Public Use
  Company Number: BG-TEVA-2018-BG-880770

PATIENT
  Age: 87 Year
  Sex: Female

DRUGS (1)
  1. VERAPAMIL [Suspect]
     Active Substance: VERAPAMIL HYDROCHLORIDE
     Route: 048

REACTIONS (9)
  - Coma [Recovered/Resolved]
  - Respiration abnormal [Recovered/Resolved]
  - Somnolence [Recovered/Resolved]
  - Stupor [Recovered/Resolved]
  - Heart rate abnormal [Recovered/Resolved]
  - Overdose [Recovered/Resolved]
  - Bradycardia [Recovered/Resolved]
  - Intentional product misuse [Recovered/Resolved]
  - Hypotension [Recovered/Resolved]
